FAERS Safety Report 11435720 (Version 1)
Quarter: 2015Q3

REPORT INFORMATION
  Report Type: Spontaneous
  Country: US (occurrence: US)
  Receive Date: 20150821
  Receipt Date: 20150821
  Transmission Date: 20151125
  Serious: No
  Sender: FDA-Public Use
  Company Number: US-ELI_LILLY_AND_COMPANY-US201311000391

PATIENT
  Age: 61 Year
  Sex: Female

DRUGS (2)
  1. HUMULIN 70/30 [Suspect]
     Active Substance: INSULIN HUMAN
     Dosage: 12 U, BID
     Route: 065
     Dates: start: 201309
  2. HUMULIN 70/30 [Suspect]
     Active Substance: INSULIN HUMAN
     Indication: TYPE 2 DIABETES MELLITUS
     Dosage: 10 U, BID
     Route: 065
     Dates: start: 201309

REACTIONS (4)
  - Dysgeusia [Unknown]
  - Incorrect dose administered [Unknown]
  - Pruritus [Unknown]
  - Visual impairment [Unknown]

NARRATIVE: CASE EVENT DATE: 201309
